FAERS Safety Report 13742679 (Version 2)
Quarter: 2017Q3

REPORT INFORMATION
  Report Type: Report from Study
  Country: DE (occurrence: DE)
  Receive Date: 20170711
  Receipt Date: 20170809
  Transmission Date: 20171127
  Serious: Yes (Other)
  Sender: FDA-Public Use
  Company Number: PHHY2015DE006392

PATIENT
  Age: 34 Year
  Sex: Female

DRUGS (3)
  1. GILENYA [Suspect]
     Active Substance: FINGOLIMOD HYDROCHLORIDE
     Indication: MULTIPLE SCLEROSIS
     Dosage: QD
     Route: 048
     Dates: start: 20140424, end: 20170212
  2. GILENYA [Suspect]
     Active Substance: FINGOLIMOD HYDROCHLORIDE
     Dosage: QD
     Route: 048
     Dates: start: 20170301
  3. GILENYA [Suspect]
     Active Substance: FINGOLIMOD HYDROCHLORIDE
     Dosage: QD
     Route: 048
     Dates: start: 20170213, end: 20170228

REACTIONS (15)
  - Nausea [Unknown]
  - Platelet count decreased [Unknown]
  - Presyncope [Unknown]
  - White blood cell count decreased [Unknown]
  - Viral infection [Recovered/Resolved]
  - Neutrophil percentage increased [Unknown]
  - Nasopharyngitis [Recovered/Resolved]
  - Panic attack [Recovered/Resolved]
  - Leukopenia [Not Recovered/Not Resolved]
  - Blood bilirubin increased [Unknown]
  - Dysaesthesia [Unknown]
  - Fatigue [Unknown]
  - Depressed level of consciousness [Unknown]
  - Monocyte percentage increased [Unknown]
  - Lymphocyte percentage decreased [Unknown]

NARRATIVE: CASE EVENT DATE: 20140523
